FAERS Safety Report 12740840 (Version 1)
Quarter: 2016Q3

REPORT INFORMATION
  Report Type: Spontaneous
  Country: US (occurrence: US)
  Receive Date: 20160914
  Receipt Date: 20160914
  Transmission Date: 20161109
  Serious: No
  Sender: FDA-Public Use
  Company Number: US-TEVA-623720USA

PATIENT
  Sex: Female

DRUGS (1)
  1. FLUOXETINE [Suspect]
     Active Substance: FLUOXETINE HYDROCHLORIDE
     Dosage: 20 MILLIGRAM DAILY;

REACTIONS (6)
  - Oesophageal pain [Not Recovered/Not Resolved]
  - Foreign body [Recovered/Resolved]
  - Abdominal pain upper [Recovered/Resolved]
  - Product physical issue [Unknown]
  - Burn oesophageal [Not Recovered/Not Resolved]
  - Gastrooesophageal reflux disease [Not Recovered/Not Resolved]
